FAERS Safety Report 5916443-0 (Version None)
Quarter: 2008Q4

REPORT INFORMATION
  Report Type: 
  Country: None (occurrence: None)
  Receive Date: 20081013
  Receipt Date: 20081006
  Transmission Date: 20090506
  Serious: Yes (Hospitalization)
  Sender: FDA-Public Use
  Company Number: US-AVENTIS-200815722US

PATIENT
  Age: 52 Year
  Sex: Male

DRUGS (8)
  1. LANTUS [Suspect]
     Route: 058
     Dates: end: 20080101
  2. HUMALOG [Concomitant]
  3. LEVEMIR [Concomitant]
     Dosage: DOSE: UNK
  4. NOVOLOG [Concomitant]
     Dosage: DOSE: UNK
  5. ASPIRIN [Concomitant]
     Dosage: DOSE: UNK
  6. XANAX [Concomitant]
     Dosage: DOSE: UNK
  7. LASIX [Concomitant]
     Dosage: DOSE: UNK
  8. NIOSPAN [Concomitant]
     Dosage: DOSE: UNK

REACTIONS (4)
  - ABDOMINAL ABSCESS [None]
  - CELLULITIS [None]
  - INJECTION SITE ERYTHEMA [None]
  - INJECTION SITE INFECTION [None]
